FAERS Safety Report 14731802 (Version 1)
Quarter: 2018Q2

REPORT INFORMATION
  Report Type: Spontaneous
  Country: IT (occurrence: IT)
  Receive Date: 20180408
  Receipt Date: 20180408
  Transmission Date: 20180711
  Serious: Yes (Other)
  Sender: FDA-Public Use
  Company Number: IT-DEXPHARM-20180232

PATIENT
  Age: 57 Year
  Sex: Female

DRUGS (1)
  1. CORSODYL 200 MG/100 ML SPRAY PER MUCOSA ORALE [Suspect]
     Active Substance: CHLORHEXIDINE GLUCONATE
     Indication: DENTAL OPERATION
     Dosage: IN TOTAL
     Route: 048
     Dates: start: 20180317, end: 20180317

REACTIONS (2)
  - Dry mouth [Recovered/Resolved]
  - Tongue oedema [Recovered/Resolved]

NARRATIVE: CASE EVENT DATE: 20180317
